FAERS Safety Report 20953773 (Version 1)
Quarter: 2022Q2

REPORT INFORMATION
  Report Type: Spontaneous
  Country: SD (occurrence: SD)
  Receive Date: 20220614
  Receipt Date: 20220614
  Transmission Date: 20220721
  Serious: Yes (Other)
  Sender: FDA-Public Use
  Company Number: SD-SUN PHARMACEUTICAL INDUSTRIES LTD-2022R1-340162

PATIENT
  Age: 8 Month
  Sex: Male
  Weight: 6 kg

DRUGS (2)
  1. FUROSEMIDE [Suspect]
     Active Substance: FUROSEMIDE
     Indication: Hypercalcaemia
     Dosage: UNK
     Route: 065
  2. CALCITONIN [Suspect]
     Active Substance: CALCITONIN
     Indication: Hypercalcaemia
     Dosage: UNK
     Route: 065

REACTIONS (1)
  - Drug resistance [Unknown]
